FAERS Safety Report 9748465 (Version 1)
Quarter: 2013Q4

REPORT INFORMATION
  Report Type: Spontaneous
  Country: FR (occurrence: FR)
  Receive Date: 20131212
  Receipt Date: 20131212
  Transmission Date: 20140711
  Serious: Yes (Other)
  Sender: FDA-Public Use
  Company Number: FR-NOVOPROD-394833

PATIENT
  Age: 76 Year
  Sex: Male
  Weight: 136 kg

DRUGS (2)
  1. VICTOZA [Suspect]
     Indication: PRODUCT USED FOR UNKNOWN INDICATION
     Dosage: UNK
     Route: 065
     Dates: start: 20131112
  2. METFORMINE [Concomitant]
     Dosage: 850 MG, TID

REACTIONS (1)
  - Oesophagitis [Unknown]
